FAERS Safety Report 17995217 (Version 1)
Quarter: 2020Q3

REPORT INFORMATION
  Report Type: Spontaneous
  Country: US (occurrence: US)
  Receive Date: 20200708
  Receipt Date: 20200708
  Transmission Date: 20201103
  Serious: No
  Sender: FDA-Public Use
  Company Number: US-TEVA-2020-US-1797792

PATIENT
  Age: 53 Year
  Sex: Female

DRUGS (1)
  1. WARFARIN [Suspect]
     Active Substance: WARFARIN
     Route: 065
     Dates: start: 2013, end: 2013

REACTIONS (2)
  - Pruritus [Unknown]
  - Product substitution issue [Unknown]
